FAERS Safety Report 8942479 (Version 1)
Quarter: 2012Q4

REPORT INFORMATION
  Report Type: Spontaneous
  Country: DK (occurrence: None)
  Receive Date: 20121121
  Receipt Date: 20121121
  Transmission Date: 20130627
  Serious: Yes (Death, Hospitalization)
  Sender: FDA-Public Use
  Company Number: 2012MA013465

PATIENT
  Age: 70 Year
  Sex: Female

DRUGS (2)
  1. DIAZEPAM [Suspect]
  2. MIRTAZAPINE [Suspect]

REACTIONS (6)
  - Neuroleptic malignant syndrome [None]
  - Sedation [None]
  - Dehydration [None]
  - Pyrexia [None]
  - Urinary tract infection [None]
  - Cystitis escherichia [None]
